FAERS Safety Report 12784431 (Version 9)
Quarter: 2017Q1

REPORT INFORMATION
  Report Type: Report from Study
  Country: None (occurrence: IL)
  Receive Date: 20160927
  Receipt Date: 20170215
  Transmission Date: 20170428
  Serious: Yes (Life-Threatening, Hospitalization)
  Sender: FDA-Public Use
  Company Number: IL-ABBVIE-16P-082-1659053-00

PATIENT
  Age: 57 Year
  Sex: Male

DRUGS (4)
  1. DUODOPA [Suspect]
     Active Substance: CARBIDOPA\LEVODOPA
     Indication: PARKINSON^S DISEASE
     Dosage: 2.5 ML/HR, PEG INSERTION
     Route: 050
     Dates: start: 20160320
  2. XANAX [Concomitant]
     Active Substance: ALPRAZOLAM
     Indication: PRODUCT USED FOR UNKNOWN INDICATION
  3. XANAX [Concomitant]
     Active Substance: ALPRAZOLAM
     Dosage: DOSAGE DECREASED
  4. OXYCONTIN [Concomitant]
     Active Substance: OXYCODONE HYDROCHLORIDE
     Indication: PRODUCT USED FOR UNKNOWN INDICATION

REACTIONS (31)
  - General physical health deterioration [Recovering/Resolving]
  - Depressed mood [Not Recovered/Not Resolved]
  - Pulmonary embolism [Unknown]
  - Asthenia [Unknown]
  - Movement disorder [Not Recovered/Not Resolved]
  - Muscular weakness [Unknown]
  - Deep vein thrombosis [Unknown]
  - Paraesthesia [Not Recovered/Not Resolved]
  - Mental disorder [Not Recovered/Not Resolved]
  - Hypophagia [Not Recovered/Not Resolved]
  - Agitation [Unknown]
  - Dyskinesia [Not Recovered/Not Resolved]
  - Headache [Not Recovered/Not Resolved]
  - Asthenia [Unknown]
  - Dyskinesia [Not Recovered/Not Resolved]
  - Hallucination [Recovering/Resolving]
  - Anxiety [Recovering/Resolving]
  - Limb injury [Unknown]
  - Device damage [Unknown]
  - Nerve compression [Unknown]
  - Decreased appetite [Recovering/Resolving]
  - Euphoric mood [Unknown]
  - On and off phenomenon [Unknown]
  - Head injury [Unknown]
  - On and off phenomenon [Not Recovered/Not Resolved]
  - Muscle rigidity [Unknown]
  - Activities of daily living impaired [Not Recovered/Not Resolved]
  - Somnolence [Not Recovered/Not Resolved]
  - Fall [Unknown]
  - Patient uncooperative [Unknown]
  - Pain [Not Recovered/Not Resolved]

NARRATIVE: CASE EVENT DATE: 2016
